FAERS Safety Report 8099577-7 (Version None)
Quarter: 2012Q1

REPORT INFORMATION
  Report Type: 
  Country: None (occurrence: None)
  Receive Date: 20120129
  Receipt Date: 20111031
  Transmission Date: 20120608
  Serious: No
  Sender: FDA-Public Use
  Company Number: US-ABBOTT-11P-163-0861996-00

PATIENT
  Sex: Female
  Weight: 60.382 kg

DRUGS (5)
  1. MERCAPTOPURINE [Concomitant]
     Indication: COLITIS ULCERATIVE
  2. MERCAPTOPURINE [Concomitant]
  3. HUMIRA [Suspect]
     Indication: COLITIS
     Route: 058
     Dates: start: 20110501, end: 20111001
  4. STEROID [Concomitant]
     Indication: COLITIS ULCERATIVE
  5. HUMIRA [Suspect]
     Indication: COLITIS ULCERATIVE
     Route: 058
     Dates: start: 20100801, end: 20110501

REACTIONS (2)
  - COLITIS ULCERATIVE [None]
  - DRUG INEFFECTIVE [None]
